FAERS Safety Report 10202233 (Version 1)
Quarter: 2014Q2

REPORT INFORMATION
  Report Type: Spontaneous
  Country: JP (occurrence: JP)
  Receive Date: 20140528
  Receipt Date: 20140528
  Transmission Date: 20141212
  Serious: Yes (Hospitalization)
  Sender: FDA-Public Use
  Company Number: JP-SA-2014SA065848

PATIENT
  Age: 78 Year
  Sex: Female
  Weight: 45 kg

DRUGS (21)
  1. ELPLAT [Suspect]
     Indication: COLON CANCER
     Route: 041
     Dates: start: 20140428, end: 20140428
  2. CALCIUM LEVOFOLINATE [Suspect]
     Indication: COLON CANCER
     Route: 041
     Dates: start: 20140428, end: 20140428
  3. 5-FU [Suspect]
     Indication: COLON CANCER
     Route: 040
     Dates: start: 20140428, end: 20140428
  4. 5-FU [Suspect]
     Indication: COLON CANCER
     Route: 041
     Dates: start: 20140428, end: 20140428
  5. BLOPRESS [Suspect]
     Indication: HYPERTENSION
     Route: 048
     Dates: start: 20140501
  6. ALOXI [Concomitant]
     Dates: start: 20140428, end: 20140428
  7. DEXART [Concomitant]
     Dates: start: 20140428, end: 20140428
  8. ZANTAC [Concomitant]
     Dates: start: 20140428, end: 20140428
  9. POLARAMINE [Concomitant]
     Dates: start: 20140428, end: 20140428
  10. EMEND [Concomitant]
     Dates: start: 20140428, end: 20140430
  11. DECADRON [Concomitant]
     Dates: start: 20140429, end: 20140501
  12. DAIKENTYUTO [Concomitant]
     Dosage: GRANULE
     Dates: start: 20140428
  13. POVIDONE IODINE [Concomitant]
     Dates: start: 20140428
  14. NASEA [Concomitant]
     Dates: start: 20140501
  15. AMITIZA [Concomitant]
     Dates: start: 20140501
  16. BUSCOPAN [Concomitant]
     Dates: start: 20140505
  17. BUSCOPAN [Concomitant]
     Dates: start: 20140511
  18. RIZE [Concomitant]
     Dates: start: 20140505
  19. BROTIZOLAM [Concomitant]
     Dates: start: 20140505
  20. EKSALB [Concomitant]
     Dates: start: 20140507
  21. POSTERISAN [Concomitant]
     Dates: start: 20140507

REACTIONS (1)
  - Urinary retention [Not Recovered/Not Resolved]
